FAERS Safety Report 21126053 (Version 1)
Quarter: 2022Q3

REPORT INFORMATION
  Report Type: Spontaneous
  Country: US (occurrence: None)
  Receive Date: 20220723
  Receipt Date: 20220723
  Transmission Date: 20221027
  Serious: Yes (Other)
  Sender: FDA-Public Use
  Company Number: None

PATIENT
  Age: 55 Year
  Sex: Female

DRUGS (7)
  1. ZUBSOLV [Suspect]
     Active Substance: BUPRENORPHINE HYDROCHLORIDE\NALOXONE HYDROCHLORIDE
     Indication: Pain
     Dates: start: 20200608, end: 20220416
  2. EFFEXOR [Concomitant]
     Active Substance: VENLAFAXINE HYDROCHLORIDE
  3. CATAPRES [Concomitant]
     Active Substance: CLONIDINE HYDROCHLORIDE
  4. LEVEMIR [Concomitant]
     Active Substance: INSULIN DETEMIR
  5. NOVOLOG [Concomitant]
     Active Substance: INSULIN ASPART
  6. SEROQUEL [Concomitant]
     Active Substance: QUETIAPINE FUMARATE
  7. MIRTAZAPINE [Concomitant]
     Active Substance: MIRTAZAPINE

REACTIONS (1)
  - Tooth loss [None]

NARRATIVE: CASE EVENT DATE: 20200908
